FAERS Safety Report 7027317-9 (Version None)
Quarter: 2010Q4

REPORT INFORMATION
  Report Type: 
  Country: None (occurrence: None)
  Receive Date: 20101004
  Receipt Date: 20100917
  Transmission Date: 20110411
  Serious: Yes (Other)
  Sender: FDA-Public Use
  Company Number: PHEH2008US03883

PATIENT
  Sex: Female

DRUGS (30)
  1. AREDIA [Suspect]
     Dosage: 60 MG, UNK
  2. ZOMETA [Suspect]
     Dosage: 4 MG, UNK
     Dates: start: 20030311
  3. SYNTHROID [Concomitant]
  4. NEXIUM [Concomitant]
     Dosage: UNK
     Dates: start: 20050205
  5. NEURONTIN [Concomitant]
     Dosage: 100 MG, TID
  6. ASPIRIN [Concomitant]
     Dosage: 81 MG, UNK
  7. ASPIRIN [Concomitant]
     Dosage: 325 MG, UNK
  8. FOSAMAX [Concomitant]
  9. CALTRATE + D                       /00944201/ [Concomitant]
  10. DARVOCET-N 100 [Concomitant]
  11. EVISTA [Concomitant]
     Dosage: 60 MG, UNK
  12. MIACALCIN [Concomitant]
  13. PRILOSEC [Concomitant]
     Dosage: UNK
     Dates: end: 20050205
  14. ZANTAC [Concomitant]
     Dosage: UNK
     Dates: end: 20050205
  15. LYRICA [Concomitant]
  16. TEGRETOL [Concomitant]
  17. AUGMENTIN '125' [Concomitant]
  18. ARTHROTEC [Concomitant]
  19. CELEBREX [Concomitant]
  20. VIOXX [Concomitant]
  21. ZOCOR [Concomitant]
  22. VALIUM [Concomitant]
  23. TAZORAC [Concomitant]
  24. AMBIEN [Concomitant]
  25. LOMOTIL [Concomitant]
  26. ZOLOFT [Concomitant]
  27. GLUCOSAMINE [Concomitant]
  28. FENTANYL [Concomitant]
  29. MIDAZOLAM HCL [Concomitant]
  30. PROPOFOL [Concomitant]

REACTIONS (75)
  - ACTINIC KERATOSIS [None]
  - AMNESIA [None]
  - ANXIETY [None]
  - ARTHRITIS [None]
  - ATRIAL TACHYCARDIA [None]
  - BASAL CELL CARCINOMA [None]
  - BLADDER SPASM [None]
  - BREAST CALCIFICATIONS [None]
  - BRONCHIECTASIS [None]
  - CANDIDIASIS [None]
  - CARDIAC OPERATION [None]
  - CATARACT [None]
  - CATARACT OPERATION [None]
  - CATHETERISATION CARDIAC [None]
  - CEREBRAL ATROPHY [None]
  - CHEST X-RAY ABNORMAL [None]
  - CYST [None]
  - DEBRIDEMENT [None]
  - DEFORMITY [None]
  - DENTAL IMPLANTATION [None]
  - DERMAL CYST [None]
  - DYSGEUSIA [None]
  - DYSPHAGIA [None]
  - DYSURIA [None]
  - EMOTIONAL DISTRESS [None]
  - ENDODONTIC PROCEDURE [None]
  - EYE PROSTHESIS INSERTION [None]
  - FALL [None]
  - FIBROCYSTIC BREAST DISEASE [None]
  - GASTROOESOPHAGEAL REFLUX DISEASE [None]
  - HIATUS HERNIA [None]
  - HYPERLIPIDAEMIA [None]
  - HYPOAESTHESIA [None]
  - HYPOTHYROIDISM [None]
  - INFECTION [None]
  - INFLAMMATION [None]
  - INJURY [None]
  - INTERVERTEBRAL DISC DEGENERATION [None]
  - LUMBAR RADICULOPATHY [None]
  - LUMBAR SPINAL STENOSIS [None]
  - LUNG HYPERINFLATION [None]
  - LUNG NEOPLASM [None]
  - MICROGRAPHIC SKIN SURGERY [None]
  - MICTURITION URGENCY [None]
  - MITRAL VALVE INCOMPETENCE [None]
  - MITRAL VALVE REPAIR [None]
  - NECK PAIN [None]
  - NEUROPATHY PERIPHERAL [None]
  - OESOPHAGEAL DISORDER [None]
  - OSTEITIS [None]
  - OSTEOARTHRITIS [None]
  - OSTEOMYELITIS [None]
  - OSTEONECROSIS OF JAW [None]
  - OSTEOPENIA [None]
  - PAIN [None]
  - PAIN IN EXTREMITY [None]
  - PHYSICAL DISABILITY [None]
  - PLEURAL EFFUSION [None]
  - PURPURA [None]
  - RAYNAUD'S PHENOMENON [None]
  - ROSACEA [None]
  - SCAR [None]
  - SCIATICA [None]
  - SEBORRHOEIC KERATOSIS [None]
  - SKIN DISORDER [None]
  - SKIN OPERATION [None]
  - SPONDYLOLISTHESIS [None]
  - SQUAMOUS CELL CARCINOMA OF SKIN [None]
  - SUICIDAL IDEATION [None]
  - THYROID DISORDER [None]
  - TOOTH EXTRACTION [None]
  - TOOTH FRACTURE [None]
  - ULCER [None]
  - URINARY TRACT INFECTION [None]
  - WRIST FRACTURE [None]
